FAERS Safety Report 10213512 (Version 1)
Quarter: 2014Q2

REPORT INFORMATION
  Report Type: Spontaneous
  Country: US (occurrence: None)
  Receive Date: 20140530
  Receipt Date: 20140530
  Transmission Date: 20141212
  Serious: No
  Sender: FDA-Public Use
  Company Number: None

PATIENT
  Age: 79 Year
  Sex: Male
  Weight: 73.5 kg

DRUGS (1)
  1. ASPIRIN [Suspect]
     Dosage: 81 MG, EVERY DAY, PO
     Route: 048
     Dates: start: 20120101, end: 20130514

REACTIONS (1)
  - Gastric haemorrhage [None]
